FAERS Safety Report 5985901-5 (Version None)
Quarter: 2008Q4

REPORT INFORMATION
  Report Type: 
  Country: None (occurrence: None)
  Receive Date: 20081203
  Receipt Date: 20081203
  Transmission Date: 20090506
  Serious: Yes (Other)
  Sender: FDA-Public Use
  Company Number: None

PATIENT
  Sex: Female

DRUGS (1)
  1. XOPENEX HFA [Suspect]
     Dosage: INHALE 2 PUFFS EVERY 4 HOURS AS NEEDED

REACTIONS (1)
  - RASH [None]
